FAERS Safety Report 5084549-7 (Version None)
Quarter: 2006Q3

REPORT INFORMATION
  Report Type: 
  Country: None (occurrence: None)
  Receive Date: 20060815
  Receipt Date: 20060731
  Transmission Date: 20061208
  Serious: Yes (Hospitalization, Other)
  Sender: FDA-Public Use
  Company Number: 2006AL002038

PATIENT
  Age: 72 Year
  Sex: Male

DRUGS (3)
  1. DICLOFENAC [Suspect]
     Indication: GOUT
     Dosage: 50 MG; TID; PO
     Route: 048
     Dates: start: 20051125, end: 20051214
  2. RAMIPRIL [Concomitant]
  3. ATENOLOL [Concomitant]

REACTIONS (2)
  - IMMUNE SYSTEM DISORDER [None]
  - THROMBOCYTOPENIA [None]
